FAERS Safety Report 23528427 (Version 1)
Quarter: 2024Q1

REPORT INFORMATION
  Report Type: Spontaneous
  Country: JP (occurrence: JP)
  Receive Date: 20240215
  Receipt Date: 20240215
  Transmission Date: 20240410
  Serious: Yes (Other)
  Sender: FDA-Public Use
  Company Number: JP-SA-SAC20240214001316

PATIENT

DRUGS (1)
  1. MYSTAN [Suspect]
     Active Substance: CLOBAZAM
     Indication: Product used for unknown indication
     Dosage: 11.3 MG, TID
     Route: 048

REACTIONS (2)
  - Mental impairment [Unknown]
  - Anticonvulsant drug level increased [Unknown]
